FAERS Safety Report 4884787-X (Version None)
Quarter: 2006Q1

REPORT INFORMATION
  Report Type: 
  Country: None (occurrence: None)
  Receive Date: 20060119
  Receipt Date: 20060109
  Transmission Date: 20060701
  Serious: Yes (Hospitalization)
  Sender: FDA-Public Use
  Company Number: AU-NOVOPROD-249854

PATIENT
  Age: 51 Year
  Sex: Male

DRUGS (2)
  1. NOVORAPID [Suspect]
     Indication: DIABETES MELLITUS
  2. KAPANOL [Concomitant]

REACTIONS (2)
  - GASTROINTESTINAL CARCINOMA [None]
  - NEOPLASM MALIGNANT [None]
